FAERS Safety Report 4689875-9 (Version None)
Quarter: 2005Q2

REPORT INFORMATION
  Report Type: 
  Country: None (occurrence: None)
  Receive Date: 20050614
  Receipt Date: 20040422
  Transmission Date: 20051028
  Serious: Yes (Hospitalization, Disabling)
  Sender: FDA-Public Use
  Company Number: GSK12162

PATIENT
  Age: 25 Year
  Sex: Female

DRUGS (5)
  1. BC HEADACHE POWDER [Suspect]
     Route: 048
  2. ROBITUSSIN [Suspect]
     Route: 048
  3. TRIAMINIC SRT [Suspect]
     Route: 048
  4. NAPROXEN [Concomitant]
     Dosage: 500MG PER DAY
     Route: 048
     Dates: start: 19980101
  5. VENTOLIN [Concomitant]
     Route: 055

REACTIONS (47)
  - ADJUSTMENT DISORDER [None]
  - ARTHRITIS [None]
  - ASTHENIA [None]
  - BACK PAIN [None]
  - BIPOLAR DISORDER [None]
  - CARDIAC DISORDER [None]
  - CEREBROVASCULAR ACCIDENT [None]
  - CHEST PAIN [None]
  - COMPLICATED MIGRAINE [None]
  - CONVULSION [None]
  - DEPRESSED MOOD [None]
  - DEPRESSION [None]
  - DIZZINESS [None]
  - DRUG ABUSER [None]
  - DYSPNOEA [None]
  - DYSTHYMIC DISORDER [None]
  - GAIT DISTURBANCE [None]
  - GASTRIC DISORDER [None]
  - HEADACHE [None]
  - HEMIPARESIS [None]
  - HOMICIDAL IDEATION [None]
  - HYPERREFLEXIA [None]
  - HYPERTENSION [None]
  - HYPOAESTHESIA [None]
  - HYPOREFLEXIA [None]
  - ILL-DEFINED DISORDER [None]
  - INTRACRANIAL ANEURYSM [None]
  - MAJOR DEPRESSION [None]
  - MENTAL IMPAIRMENT [None]
  - MOTOR DYSFUNCTION [None]
  - MUSCLE TWITCHING [None]
  - NAUSEA [None]
  - OBESITY [None]
  - OEDEMA PERIPHERAL [None]
  - OPPOSITIONAL DEFIANT DISORDER [None]
  - PARALYSIS [None]
  - PERONEAL NERVE PALSY [None]
  - PHOTOPHOBIA [None]
  - PHOTOPSIA [None]
  - SENSORY LOSS [None]
  - SINUS TACHYCARDIA [None]
  - SPEECH DISORDER [None]
  - SUICIDAL IDEATION [None]
  - SYNCOPE [None]
  - TREMOR [None]
  - VOMITING [None]
  - WALKING AID USER [None]
